FAERS Safety Report 5734462-4 (Version None)
Quarter: 2008Q2

REPORT INFORMATION
  Report Type: 
  Country: None (occurrence: None)
  Receive Date: 20080512
  Receipt Date: 20080428
  Transmission Date: 20081010
  Serious: No
  Sender: FDA-Public Use
  Company Number: DE-BAXTER-2008BH001127

PATIENT
  Age: 45 Year
  Sex: Male
  Weight: 75 kg

DRUGS (16)
  1. GAMMAGARD LIQUID [Suspect]
     Indication: PNEUMONIA FUNGAL
     Route: 042
     Dates: start: 20080110, end: 20080110
  2. GAMMAGARD LIQUID [Suspect]
     Indication: SECONDARY IMMUNODEFICIENCY
     Route: 042
     Dates: start: 20080110, end: 20080110
  3. GAMMAGARD LIQUID [Suspect]
     Route: 042
     Dates: start: 20080110, end: 20080110
  4. GAMMAGARD LIQUID [Suspect]
     Indication: HODGKIN'S DISEASE
     Route: 042
     Dates: start: 20080110, end: 20080110
  5. RANITIDINE [Concomitant]
     Route: 042
     Dates: start: 20080101, end: 20080101
  6. FENISTIL [Concomitant]
     Route: 042
     Dates: start: 20080101, end: 20080101
  7. SOLU DACORTIN H [Concomitant]
     Route: 042
     Dates: start: 20080101, end: 20080101
  8. VFEND [Concomitant]
     Indication: PNEUMONIA FUNGAL
     Dates: start: 20080108, end: 20080117
  9. PIPERACILLIN AND TAZOBACTAM [Concomitant]
     Indication: PNEUMONIA FUNGAL
     Dates: start: 20080108, end: 20080117
  10. PANTOPRAZOLE SODIUM [Concomitant]
     Indication: PNEUMONIA FUNGAL
     Dates: start: 20080108, end: 20080117
  11. RED BLOOD CELLS [Concomitant]
     Indication: BICYTOPENIA
     Route: 042
     Dates: start: 20080101
  12. MUCOSOLVAN [Concomitant]
     Indication: PNEUMONIA FUNGAL
     Route: 055
     Dates: start: 20080108, end: 20080117
  13. COTRIM DS [Concomitant]
     Indication: HODGKIN'S DISEASE
     Route: 048
     Dates: start: 20080108, end: 20080117
  14. ITRACONAZOLE [Concomitant]
  15. AVELOX [Concomitant]
  16. PERENTEROL FORTE [Concomitant]

REACTIONS (1)
  - DRUG INTOLERANCE [None]
